FAERS Safety Report 8592810-4 (Version None)
Quarter: 2012Q3

REPORT INFORMATION
  Report Type: 
  Country: None (occurrence: None)
  Receive Date: 20120814
  Receipt Date: 20120807
  Transmission Date: 20120928
  Serious: Yes (Hospitalization)
  Sender: FDA-Public Use
  Company Number: FR-PFIZER INC-2012121990

PATIENT
  Age: 4 Month
  Sex: Female

DRUGS (2)
  1. RELPAX [Suspect]
     Indication: MIGRAINE
     Dosage: UNK
     Route: 064
  2. SUMATRIPTAN SUCCINATE [Suspect]
     Indication: MIGRAINE
     Dosage: UNK
     Route: 064

REACTIONS (2)
  - MATERNAL EXPOSURE TIMING UNSPECIFIED [None]
  - CRANIOSYNOSTOSIS [None]
